FAERS Safety Report 25091118 (Version 1)
Quarter: 2025Q1

REPORT INFORMATION
  Report Type: Report from Study
  Country: US (occurrence: US)
  Receive Date: 20250318
  Receipt Date: 20250318
  Transmission Date: 20250409
  Serious: Yes (Hospitalization)
  Sender: TAKEDA
  Company Number: US-TAKEDA-2024TUS109675

PATIENT
  Sex: Female

DRUGS (5)
  1. TEDUGLUTIDE [Suspect]
     Active Substance: TEDUGLUTIDE
     Indication: Short-bowel syndrome
     Dosage: 0.38 MILLILITER, QD
     Dates: start: 202409
  2. TEDUGLUTIDE [Suspect]
     Active Substance: TEDUGLUTIDE
     Dosage: 0.38 MILLILITER, QD
     Dates: start: 202412
  3. TEDUGLUTIDE [Suspect]
     Active Substance: TEDUGLUTIDE
  4. TEDUGLUTIDE [Suspect]
     Active Substance: TEDUGLUTIDE
  5. ZOFRAN [Concomitant]
     Active Substance: ONDANSETRON HYDROCHLORIDE

REACTIONS (11)
  - Blood pressure decreased [Unknown]
  - Peripheral swelling [Unknown]
  - Stoma site haemorrhage [Unknown]
  - Blood potassium decreased [Unknown]
  - Weight decreased [Unknown]
  - Blood iron decreased [Unknown]
  - Diarrhoea [Unknown]
  - Blood creatinine increased [Unknown]
  - Product use issue [Unknown]
  - Insurance issue [Unknown]
  - Nausea [Unknown]
